FAERS Safety Report 22056717 (Version 1)
Quarter: 2023Q1

REPORT INFORMATION
  Report Type: Spontaneous
  Country: DE (occurrence: DE)
  Receive Date: 20230302
  Receipt Date: 20230302
  Transmission Date: 20230418
  Serious: Yes (Life-Threatening, Hospitalization, Other)
  Sender: FDA-Public Use
  Company Number: DE-ENDO PHARMACEUTICALS INC-2023-001098

PATIENT
  Age: 32 Year
  Sex: Male

DRUGS (1)
  1. AVEED [Suspect]
     Active Substance: TESTOSTERONE UNDECANOATE
     Indication: Klinefelter^s syndrome
     Dosage: 1 DF, EVERY 3 MONTHS
     Route: 065
     Dates: start: 2018

REACTIONS (3)
  - Respiratory arrest [Unknown]
  - Pulse absent [Unknown]
  - Loss of consciousness [Unknown]
